FAERS Safety Report 5168036-3 (Version None)
Quarter: 2006Q4

REPORT INFORMATION
  Report Type: 
  Country: None (occurrence: None)
  Receive Date: 20061208
  Receipt Date: 20060404
  Transmission Date: 20070319
  Serious: No
  Sender: FDA-Public Use
  Company Number: US-GLAXOSMITHKLINE-A0600353A

PATIENT
  Age: 45 Year
  Sex: Female

DRUGS (3)
  1. AVANDAMET [Suspect]
     Dosage: 1MG TWICE PER DAY
     Route: 048
     Dates: start: 20051001, end: 20060301
  2. AVANDARYL [Suspect]
     Dosage: 1MG TWICE PER DAY
     Route: 048
     Dates: start: 20060402, end: 20060402
  3. SYNTHROID [Concomitant]

REACTIONS (2)
  - ABDOMINAL PAIN [None]
  - DIARRHOEA [None]
